FAERS Safety Report 8727207 (Version 3)
Quarter: 2014Q3

REPORT INFORMATION
  Report Type: Report from Study
  Country: US (occurrence: US)
  Receive Date: 20120816
  Receipt Date: 20140805
  Transmission Date: 20150326
  Serious: Yes (Other)
  Sender: FDA-Public Use
  Company Number: PHEH2012US014098

PATIENT
  Age: 41 Year
  Sex: Male
  Weight: 152.38 kg

DRUGS (8)
  1. GILENYA [Suspect]
     Active Substance: FINGOLIMOD HYDROCHLORIDE
     Indication: RELAPSING-REMITTING MULTIPLE SCLEROSIS
     Dosage: 0.5 MG, QD
     Route: 048
     Dates: start: 20120222, end: 20120604
  2. LAMISIL [Interacting]
     Active Substance: TERBINAFINE HYDROCHLORIDE
  3. CALCIUM CARBONATE. [Concomitant]
     Active Substance: CALCIUM CARBONATE
  4. GILENYA [Interacting]
     Active Substance: FINGOLIMOD HYDROCHLORIDE
     Dosage: 0.5 MG, QD
     Route: 048
  5. MULTI-VIT [Concomitant]
     Active Substance: VITAMINS
  6. VITAMIN D [Concomitant]
     Active Substance: CHOLECALCIFEROL
  7. FISH OIL [Concomitant]
     Active Substance: FISH OIL
  8. VITAMIN B12 [Concomitant]
     Active Substance: CYANOCOBALAMIN

REACTIONS (14)
  - Hepatic enzyme increased [Recovered/Resolved]
  - Eye pain [Recovered/Resolved]
  - Alanine aminotransferase increased [Recovered/Resolved]
  - Dehydration [Unknown]
  - Tinnitus [Unknown]
  - Nausea [Unknown]
  - Liver function test abnormal [Recovered/Resolved]
  - Pupillary reflex impaired [Unknown]
  - Headache [Recovered/Resolved]
  - Vision blurred [Unknown]
  - Aspartate aminotransferase increased [Recovered/Resolved]
  - Corneal light reflex test abnormal [Unknown]
  - Oedema [Unknown]
  - Drug interaction [Unknown]

NARRATIVE: CASE EVENT DATE: 20120509
